FAERS Safety Report 18917716 (Version 1)
Quarter: 2021Q1

REPORT INFORMATION
  Report Type: Report from Study
  Country: US (occurrence: US)
  Receive Date: 20210219
  Receipt Date: 20210219
  Transmission Date: 20210420
  Serious: Yes (Other)
  Sender: FDA-Public Use
  Company Number: US-ASTRAZENECA-2021A064816

PATIENT
  Age: 632 Month
  Sex: Female

DRUGS (1)
  1. TAGRISSO [Suspect]
     Active Substance: OSIMERTINIB
     Indication: NON-SMALL CELL LUNG CANCER STAGE IV
     Dosage: UNKNOWN
     Route: 048
     Dates: start: 20200218, end: 20210205

REACTIONS (4)
  - Dry skin [Unknown]
  - Therapeutic response unexpected [Unknown]
  - Carbohydrate antigen 125 increased [Unknown]
  - Pneumonia [Unknown]

NARRATIVE: CASE EVENT DATE: 202008
